FAERS Safety Report 5278499-0 (Version None)
Quarter: 2007Q1

REPORT INFORMATION
  Report Type: 
  Country: None (occurrence: None)
  Receive Date: 20070328
  Receipt Date: 20070319
  Transmission Date: 20070707
  Serious: Yes (Other)
  Sender: FDA-Public Use
  Company Number: 2007AC00416

PATIENT
  Sex: Male
  Weight: 75 kg

DRUGS (3)
  1. CRESTOR [Suspect]
     Indication: PROPHYLAXIS
     Route: 048
     Dates: start: 20050627, end: 20070308
  2. CHOLESTIN [Concomitant]
     Indication: PROPHYLAXIS
  3. EMCONCOR [Concomitant]
     Indication: HYPERTENSION
     Dosage: '10MG 1/2 / DAY'
     Route: 048
     Dates: start: 20030101

REACTIONS (2)
  - BLOOD URIC ACID INCREASED [None]
  - GAMMA-GLUTAMYLTRANSFERASE INCREASED [None]
